FAERS Safety Report 17077759 (Version 1)
Quarter: 2019Q4

REPORT INFORMATION
  Report Type: Spontaneous
  Country: US (occurrence: US)
  Receive Date: 20191126
  Receipt Date: 20191126
  Transmission Date: 20200122
  Serious: Yes (Other)
  Sender: FDA-Public Use
  Company Number: US-AMGEN INC.-USASP2019193721

PATIENT
  Sex: Female

DRUGS (1)
  1. AIMOVIG [Suspect]
     Active Substance: ERENUMAB-AOOE
     Indication: PRODUCT USED FOR UNKNOWN INDICATION
     Dosage: UNK
     Route: 065

REACTIONS (11)
  - Dyspnoea [Unknown]
  - Migraine [Unknown]
  - Paraesthesia [Unknown]
  - Pyrexia [Unknown]
  - Rheumatoid arthritis [Unknown]
  - Alopecia [Unknown]
  - Palpitations [Unknown]
  - Flushing [Unknown]
  - Influenza like illness [Recovered/Resolved]
  - Chills [Unknown]
  - Rosacea [Unknown]
